FAERS Safety Report 10089086 (Version 3)
Quarter: 2014Q2

REPORT INFORMATION
  Report Type: Spontaneous
  Country: CN (occurrence: CN)
  Receive Date: 20140421
  Receipt Date: 20140517
  Transmission Date: 20141212
  Serious: Yes (Hospitalization)
  Sender: FDA-Public Use
  Company Number: CN-JNJFOC-20140410205

PATIENT
  Age: 56 Year
  Sex: Female
  Weight: 54 kg

DRUGS (1)
  1. TYLENOL COLD [Suspect]
     Indication: NASOPHARYNGITIS
     Route: 048
     Dates: start: 20130523, end: 20130529

REACTIONS (5)
  - Liver injury [Recovering/Resolving]
  - Jaundice [Recovered/Resolved]
  - Chromaturia [Unknown]
  - Decreased appetite [Unknown]
  - Fatigue [Unknown]
